FAERS Safety Report 19756189 (Version 3)
Quarter: 2021Q3

REPORT INFORMATION
  Report Type: Spontaneous
  Country: US (occurrence: US)
  Receive Date: 20210827
  Receipt Date: 20210913
  Transmission Date: 20211014
  Serious: No
  Sender: FDA-Public Use
  Company Number: US-SA-2021SA281215

PATIENT
  Sex: Female

DRUGS (1)
  1. AUBAGIO [Suspect]
     Active Substance: TERIFLUNOMIDE
     Indication: MULTIPLE SCLEROSIS
     Dosage: UNK

REACTIONS (5)
  - Headache [Unknown]
  - Abdominal discomfort [Unknown]
  - Macule [Unknown]
  - Condition aggravated [Unknown]
  - Gastrointestinal disorder [Unknown]
